FAERS Safety Report 10896767 (Version 1)
Quarter: 2015Q1

REPORT INFORMATION
  Report Type: Report from Study
  Country: UA (occurrence: UA)
  Receive Date: 20150309
  Receipt Date: 20150309
  Transmission Date: 20150721
  Serious: Yes (Death, Hospitalization)
  Sender: FDA-Public Use
  Company Number: UA-ROCHE-1453397

PATIENT
  Age: 55 Year
  Sex: Male
  Weight: 49.5 kg

DRUGS (9)
  1. CAPECITABINE. [Suspect]
     Active Substance: CAPECITABINE
     Indication: HER-2 POSITIVE GASTRIC CANCER
     Dosage: DOSE OF LAST TAKEN BEFORE SAE WAS 2500 MG ON 20/AUG/2014.
     Route: 048
     Dates: start: 20140806
  2. LESPENEPHRYL [Concomitant]
     Indication: CREATININE RENAL CLEARANCE DECREASED
     Route: 065
     Dates: start: 20140730, end: 20140803
  3. CISPLATIN. [Suspect]
     Active Substance: CISPLATIN
     Indication: HER-2 POSITIVE GASTRIC CANCER
     Dosage: LAST DOSE TAKEN BEFORE SAE WAS 92 MG ON 06/AUG/2014
     Route: 042
     Dates: start: 20140806
  4. CYNARA SCOLYMUS [Concomitant]
     Indication: CREATININE RENAL CLEARANCE DECREASED
     Route: 065
     Dates: start: 20140729, end: 20140803
  5. HEPTRAL [Concomitant]
     Active Substance: ADEMETIONINE
     Indication: CREATININE RENAL CLEARANCE DECREASED
     Route: 065
     Dates: start: 20140730, end: 20140803
  6. CYNARA SCOLYMUS [Concomitant]
     Route: 065
     Dates: start: 20140804
  7. TRASTUZUMAB [Suspect]
     Active Substance: TRASTUZUMAB
     Indication: HER-2 POSITIVE GASTRIC CANCER
     Dosage: DOSE OF LAST TAKEN BEFORE THE SAE WAS 396 MG ON 06/AUG/2014.
     Route: 042
     Dates: start: 20140806
  8. LESPENEPHRYL [Concomitant]
     Route: 065
     Dates: start: 20140804
  9. HEPTRAL [Concomitant]
     Active Substance: ADEMETIONINE
     Route: 065
     Dates: start: 20140804

REACTIONS (1)
  - Cardiovascular insufficiency [Fatal]

NARRATIVE: CASE EVENT DATE: 20140820
